FAERS Safety Report 24075929 (Version 5)
Quarter: 2024Q4

REPORT INFORMATION
  Report Type: Spontaneous
  Country: NZ (occurrence: NZ)
  Receive Date: 20240710
  Receipt Date: 20241007
  Transmission Date: 20250115
  Serious: Yes (Hospitalization, Disabling, Other)
  Sender: CSL BEHRING
  Company Number: NZ-BEH-2024174921

PATIENT
  Age: 70 Year
  Sex: Female
  Weight: 89 kg

DRUGS (11)
  1. HIZENTRA [Suspect]
     Active Substance: HUMAN IMMUNOGLOBULIN G
     Indication: Hypogammaglobulinaemia
     Dosage: 28G SUBCUT MONTHLY GIVEN IN WEEKLY DIVIDED DOSE
     Route: 058
     Dates: start: 20240219, end: 20240705
  2. HIZENTRA [Suspect]
     Active Substance: HUMAN IMMUNOGLOBULIN G
     Dosage: 28G SUBCUT MONTHLY GIVEN IN WEEKLY DIVIDED DOSE
     Route: 058
     Dates: start: 20240219, end: 20240705
  3. PRIVIGEN [Concomitant]
     Active Substance: HUMAN IMMUNOGLOBULIN G
     Dosage: 20 G
     Route: 065
     Dates: start: 20240715
  4. PRIVIGEN [Concomitant]
     Active Substance: HUMAN IMMUNOGLOBULIN G
     Dosage: 5 G
     Route: 065
     Dates: start: 20240715
  5. PRIVIGEN [Concomitant]
     Active Substance: HUMAN IMMUNOGLOBULIN G
     Dosage: 20 G
     Route: 065
     Dates: start: 20240812
  6. PRIVIGEN [Concomitant]
     Active Substance: HUMAN IMMUNOGLOBULIN G
     Dosage: 5G
     Route: 065
     Dates: start: 20240812
  7. PRIVIGEN [Concomitant]
     Active Substance: HUMAN IMMUNOGLOBULIN G
     Dosage: 5 G
     Route: 065
     Dates: start: 20240909
  8. PRIVIGEN [Concomitant]
     Active Substance: HUMAN IMMUNOGLOBULIN G
     Dosage: 20 G
     Route: 065
     Dates: start: 20240909
  9. ASPIRIN [Concomitant]
     Active Substance: ASPIRIN
  10. AZITHROMYCIN [Concomitant]
     Active Substance: AZITHROMYCIN
  11. FERROUS SULFATE [Concomitant]
     Active Substance: FERROUS SULFATE

REACTIONS (9)
  - Retinal vein occlusion [Unknown]
  - Lumbar vertebral fracture [Unknown]
  - Cystoid macular oedema [Unknown]
  - Pneumonia [Unknown]
  - Pyrexia [Unknown]
  - Pruritus [Unknown]
  - Kyphosis [Unknown]
  - Anaemia [Unknown]
  - Eye disorder [Unknown]

NARRATIVE: CASE EVENT DATE: 20240427
